FAERS Safety Report 8981659 (Version 2)
Quarter: 2013Q1

REPORT INFORMATION
  Report Type: Spontaneous
  Country: BR (occurrence: BR)
  Receive Date: 20121223
  Receipt Date: 20130314
  Transmission Date: 20140127
  Serious: Yes (Other)
  Sender: FDA-Public Use
  Company Number: BR-JNJFOC-20121206711

PATIENT
  Age: 39 Year
  Sex: Male

DRUGS (7)
  1. REMICADE [Suspect]
     Indication: CROHN^S DISEASE
     Route: 042
     Dates: start: 20121210
  2. REMICADE [Suspect]
     Indication: CROHN^S DISEASE
     Route: 042
     Dates: start: 20121126
  3. REMICADE [Suspect]
     Indication: CROHN^S DISEASE
     Route: 042
     Dates: start: 20121119
  4. REMICADE [Suspect]
     Indication: CROHN^S DISEASE
     Route: 042
     Dates: start: 2006
  5. MESALAZINE [Concomitant]
     Indication: CROHN^S DISEASE
     Route: 065
  6. AZATHIOPRINE [Concomitant]
     Indication: CROHN^S DISEASE
     Route: 065
  7. PREDNISONE [Concomitant]
     Indication: CROHN^S DISEASE
     Route: 065

REACTIONS (6)
  - Arrhythmia [Unknown]
  - Respiration abnormal [Unknown]
  - Tachycardia [Unknown]
  - Infusion related reaction [Unknown]
  - Cardiac arrest [Recovered/Resolved]
  - Muscle spasms [Unknown]
